FAERS Safety Report 7918487-6 (Version None)
Quarter: 2011Q4

REPORT INFORMATION
  Report Type: 
  Country: None (occurrence: None)
  Receive Date: 20111116
  Receipt Date: 20111114
  Transmission Date: 20120403
  Serious: Yes (Hospitalization, Other)
  Sender: FDA-Public Use
  Company Number: US-ELI_LILLY_AND_COMPANY-US201108001110

PATIENT
  Sex: Female
  Weight: 81.633 kg

DRUGS (12)
  1. PEPCID [Concomitant]
     Dosage: 40 MG, BID
  2. BYETTA [Suspect]
     Indication: PRODUCT USED FOR UNKNOWN INDICATION
     Dosage: 10 UG, BID
     Dates: start: 20090201
  3. SKELAXIN [Concomitant]
     Dosage: 800 MG, PRN
  4. CYMBALTA [Concomitant]
     Indication: DEPRESSION
     Dosage: 60 MG, EACH MORNING
  5. CEFROXADINE [Concomitant]
     Dosage: 250 MG, BID
  6. FEXOFENADINE [Concomitant]
     Dosage: UNK, PRN
  7. GLYBURIDE [Concomitant]
     Indication: TYPE 2 DIABETES MELLITUS
     Dosage: 5 MG, EACH MORNING
     Dates: start: 20000101
  8. ALBUTEROL [Concomitant]
     Dosage: 2 DF, QID
  9. METFORMIN HCL [Concomitant]
     Indication: TYPE 2 DIABETES MELLITUS
     Dosage: 1000 MG, BID
     Dates: start: 20000101
  10. TYLENOL                                 /SCH/ [Concomitant]
     Indication: PAIN
     Dosage: UNK, PRN
     Dates: start: 19700101
  11. DIFLUNISAL [Concomitant]
     Dosage: 500 MG, BID
  12. ESTROPIPATE [Concomitant]
     Indication: HORMONE REPLACEMENT THERAPY
     Dosage: 0.625 MG, QD
     Route: 048
     Dates: start: 19890101

REACTIONS (3)
  - PANCREATITIS [None]
  - RENAL FAILURE [None]
  - BLOOD GLUCOSE INCREASED [None]
